FAERS Safety Report 8423306-8 (Version None)
Quarter: 2012Q2

REPORT INFORMATION
  Report Type: 
  Country: None (occurrence: None)
  Receive Date: 20120608
  Receipt Date: 20120530
  Transmission Date: 20120825
  Serious: Yes (Death)
  Sender: FDA-Public Use
  Company Number: US-ACTELION-A-US2012-66614

PATIENT

DRUGS (5)
  1. LASIX [Concomitant]
  2. ASPIRIN [Concomitant]
  3. SPIRONOLACTONE [Concomitant]
  4. TRACLEER [Suspect]
     Indication: PULMONARY ARTERIAL HYPERTENSION
     Dosage: UNK
     Route: 048
     Dates: start: 20070605, end: 20120529
  5. DIGOXIN [Concomitant]

REACTIONS (1)
  - DEATH [None]
